FAERS Safety Report 12751559 (Version 3)
Quarter: 2016Q4

REPORT INFORMATION
  Report Type: Spontaneous
  Country: JP (occurrence: JP)
  Receive Date: 20160915
  Receipt Date: 20161014
  Transmission Date: 20170207
  Serious: Yes (Life-Threatening, Hospitalization, Other)
  Sender: FDA-Public Use
  Company Number: JP-009507513-1609JPN007609

PATIENT
  Age: 80 Year
  Sex: Female
  Weight: 47 kg

DRUGS (8)
  1. DIPRIVAN [Concomitant]
     Active Substance: PROPOFOL
     Dosage: 30 MG, ONCE
     Route: 042
     Dates: start: 20120814, end: 20120814
  2. ULTIVA [Concomitant]
     Active Substance: REMIFENTANIL HYDROCHLORIDE
     Dosage: 0.1 MG, ONCE
     Route: 042
     Dates: start: 20120814, end: 20120814
  3. ULTIVA [Concomitant]
     Active Substance: REMIFENTANIL HYDROCHLORIDE
     Dosage: DAILY DOSE UNKNOWN
     Route: 042
     Dates: start: 20120823, end: 20120823
  4. ULTIVA [Concomitant]
     Active Substance: REMIFENTANIL HYDROCHLORIDE
     Indication: ANAESTHESIA PROCEDURE
     Dosage: DAILY DOSE UNKNOWN
     Route: 042
     Dates: start: 20120604, end: 20120604
  5. DIPRIVAN [Concomitant]
     Active Substance: PROPOFOL
     Dosage: 2 MICROGRAM PER KILOGRAM, UNK
     Route: 042
     Dates: start: 20120823, end: 20160823
  6. ESLAX [Suspect]
     Active Substance: ROCURONIUM BROMIDE
     Dosage: 50 MG, ONCE
     Route: 042
     Dates: start: 20120814, end: 20120814
  7. DIPRIVAN [Concomitant]
     Active Substance: PROPOFOL
     Indication: ANAESTHESIA PROCEDURE
     Dosage: DAILY DOSE UNKNOWN
     Route: 042
     Dates: start: 20120604, end: 20120604
  8. ESLAX [Suspect]
     Active Substance: ROCURONIUM BROMIDE
     Indication: ANAESTHESIA PROCEDURE
     Dosage: 50 MG, ONCE
     Route: 042
     Dates: start: 20120604, end: 20120604

REACTIONS (3)
  - Anaphylactic shock [Recovered/Resolved]
  - Anaphylactic shock [Recovered/Resolved]
  - Normal pressure hydrocephalus [Not Recovered/Not Resolved]

NARRATIVE: CASE EVENT DATE: 20120604
